FAERS Safety Report 8601045-8 (Version None)
Quarter: 2012Q3

REPORT INFORMATION
  Report Type: 
  Country: None (occurrence: None)
  Receive Date: 20120817
  Receipt Date: 20120802
  Transmission Date: 20120928
  Serious: No
  Sender: FDA-Public Use
  Company Number: US-ASTRAZENECA-2012SE55157

PATIENT
  Age: 61 Year
  Sex: Female
  Weight: 88.5 kg

DRUGS (3)
  1. CRESTOR [Suspect]
     Indication: BLOOD CHOLESTEROL ABNORMAL
     Route: 048
  2. LOSARTAN POTASSIUM [Concomitant]
     Indication: BLOOD PRESSURE ABNORMAL
  3. NEXIUM [Suspect]
     Indication: GASTROOESOPHAGEAL REFLUX DISEASE
     Route: 048
     Dates: start: 20100101, end: 20100101

REACTIONS (5)
  - ABDOMINAL DISTENSION [None]
  - TOOTH MALFORMATION [None]
  - TOOTH DISORDER [None]
  - OESOPHAGEAL DISORDER [None]
  - ABDOMINAL PAIN UPPER [None]
